FAERS Safety Report 8819376 (Version 1)
Quarter: 2012Q4

REPORT INFORMATION
  Report Type: Spontaneous
  Country: US (occurrence: None)
  Receive Date: 20121004
  Receipt Date: 20121004
  Transmission Date: 20130627
  Serious: Yes (Hospitalization)
  Sender: FDA-Public Use
  Company Number: None

PATIENT
  Age: 69 Year
  Sex: Female
  Weight: 82.5 kg

DRUGS (2)
  1. VIDAZA [Suspect]
     Indication: MYELODYSPLASIA
     Dosage: 72.5mg/2.9mL once sq
     Route: 058
     Dates: start: 20120910, end: 20120910
  2. VIDAZA [Suspect]
     Indication: MYELODYSPLASIA
     Dates: start: 20120911, end: 20120911

REACTIONS (2)
  - Musculoskeletal pain [None]
  - Pain [None]
